FAERS Safety Report 4570168-5 (Version None)
Quarter: 2005Q1

REPORT INFORMATION
  Report Type: 
  Country: None (occurrence: None)
  Receive Date: 20050202
  Receipt Date: 20050120
  Transmission Date: 20050727
  Serious: Yes (Death)
  Sender: FDA-Public Use
  Company Number: A02200500156

PATIENT
  Age: 37 Year
  Sex: Female

DRUGS (4)
  1. STILNOX - (ZOLPIDEM) - TABLET - 10 MG [Suspect]
     Indication: SLEEP DISORDER
     Dosage: ORAL
     Route: 048
  2. XANAX [Suspect]
     Indication: DEPRESSION
     Dosage: ORAL
     Route: 048
  3. VALIUM [Suspect]
     Indication: DEPRESSION
     Dosage: ORAL
     Route: 048
  4. ALCOHOL [Concomitant]

REACTIONS (4)
  - ALCOHOL USE [None]
  - DRUG TOXICITY [None]
  - ILL-DEFINED DISORDER [None]
  - INTENTIONAL MISUSE [None]
